FAERS Safety Report 24706132 (Version 2)
Quarter: 2025Q1

REPORT INFORMATION
  Report Type: Spontaneous
  Country: CN (occurrence: CN)
  Receive Date: 20241206
  Receipt Date: 20250324
  Transmission Date: 20250409
  Serious: Yes (Death, Other)
  Sender: JIANGSU HANSOH PHARMACEUTICAL
  Company Number: CN-Jiangsu Hansoh Pharmaceutical Co., Ltd-2166602

PATIENT
  Age: 70 Year
  Sex: Male

DRUGS (3)
  1. AZACITIDINE [Suspect]
     Active Substance: AZACITIDINE
     Indication: Primary myelofibrosis
  2. AZACITIDINE [Suspect]
     Active Substance: AZACITIDINE
     Indication: Acute monocytic leukaemia
  3. VENETOCLAX [Suspect]
     Active Substance: VENETOCLAX

REACTIONS (6)
  - Pneumonia [Fatal]
  - Stomatitis [Unknown]
  - Blood blister [Unknown]
  - Skin haemorrhage [Unknown]
  - Granulocytosis [Unknown]
  - Respiratory failure [Fatal]
